FAERS Safety Report 6145806-6 (Version None)
Quarter: 2009Q2

REPORT INFORMATION
  Report Type: 
  Country: None (occurrence: None)
  Receive Date: 20090403
  Receipt Date: 20090319
  Transmission Date: 20091009
  Serious: Yes (Death)
  Sender: FDA-Public Use
  Company Number: TCI2009A00949

PATIENT
  Age: 66 Year
  Sex: Male

DRUGS (7)
  1. LANSOPRAZOLE [Suspect]
     Indication: PROPHYLAXIS AGAINST GASTROINTESTINAL ULCER
     Dosage: (15 MG); ORAL
     Route: 048
     Dates: start: 20080605, end: 20090301
  2. PREDNISOLONE [Concomitant]
  3. LORFENAMIN (LOXOPROFEN SODIUM) [Concomitant]
  4. BONALON (ALENDRONIC ACID) [Concomitant]
  5. ENBREL [Concomitant]
  6. RIMATIL (BUCILLAMINE) [Concomitant]
  7. MENTAX (BUTENAFINE HYDROCHLORIDE) [Concomitant]

REACTIONS (2)
  - MYOCARDIAL INFARCTION [None]
  - SUDDEN DEATH [None]
